FAERS Safety Report 8962274 (Version 2)
Quarter: 2012Q4

REPORT INFORMATION
  Report Type: 
  Country: CA (occurrence: CA)
  Receive Date: 20121211
  Receipt Date: 20121231
  Transmission Date: 20130627
  Serious: Yes (Other)
  Sender: FDA-Public Use
  Company Number: CA-ASTELLAS-2012US011917

PATIENT
  Age: 64 Year
  Sex: Male

DRUGS (1)
  1. ADVAGRAF [Suspect]
     Indication: HEART TRANSPLANT
     Dosage: UNK
     Route: 065

REACTIONS (2)
  - Renal transplant [Unknown]
  - Nasopharyngitis [Unknown]
